FAERS Safety Report 6202043-4 (Version None)
Quarter: 2009Q2

REPORT INFORMATION
  Report Type: 
  Country: None (occurrence: None)
  Receive Date: 20090526
  Receipt Date: 20090512
  Transmission Date: 20091009
  Serious: Yes (Other)
  Sender: FDA-Public Use
  Company Number: B0565052A

PATIENT
  Sex: Male

DRUGS (2)
  1. CLENIL MODULITE [Suspect]
     Indication: DRUG USE FOR UNKNOWN INDICATION
     Route: 055
  2. SEDATION (UNKNOWN) [Suspect]
     Indication: SEDATION
     Route: 065

REACTIONS (3)
  - DISORIENTATION [None]
  - HOT FLUSH [None]
  - MIDDLE INSOMNIA [None]
